FAERS Safety Report 8223816-2 (Version None)
Quarter: 2012Q1

REPORT INFORMATION
  Report Type: 
  Country: None (occurrence: None)
  Receive Date: 20120321
  Receipt Date: 20120321
  Transmission Date: 20120608
  Serious: Yes (Hospitalization)
  Sender: FDA-Public Use
  Company Number: None

PATIENT
  Sex: Female
  Weight: 63.502 kg

DRUGS (1)
  1. IMITREX [Suspect]
     Indication: HEADACHE
     Dosage: 100.0 MG
     Route: 048
     Dates: start: 20110124, end: 20110127

REACTIONS (2)
  - MYOCARDIAL INFARCTION [None]
  - CORONARY ARTERY STENOSIS [None]
